FAERS Safety Report 4589870-4 (Version None)
Quarter: 2005Q1

REPORT INFORMATION
  Report Type: 
  Country: None (occurrence: None)
  Receive Date: 20050125
  Receipt Date: 20040827
  Transmission Date: 20050727
  Serious: No
  Sender: FDA-Public Use
  Company Number: USA040874875

PATIENT
  Age: 67 Year
  Sex: Female
  Weight: 57 kg

DRUGS (4)
  1. FORTEO [Suspect]
     Indication: OSTEOPOROSIS
     Dosage: 20 UG DAY
     Dates: start: 20040805
  2. VITAMIN D [Concomitant]
  3. TUMS (CALCIUM CARBONATE) [Concomitant]
  4. PROVERA [Concomitant]

REACTIONS (5)
  - DYSSTASIA [None]
  - INJECTION SITE ERYTHEMA [None]
  - INJECTION SITE HAEMORRHAGE [None]
  - MUSCLE SPASMS [None]
  - PAIN IN EXTREMITY [None]
